FAERS Safety Report 4987605-4 (Version None)
Quarter: 2006Q2

REPORT INFORMATION
  Report Type: 
  Country: None (occurrence: None)
  Receive Date: 20060428
  Receipt Date: 20060428
  Transmission Date: 20061013
  Serious: Yes (Hospitalization)
  Sender: FDA-Public Use
  Company Number: None

PATIENT
  Age: 57 Year
  Sex: Male
  Weight: 52 kg

DRUGS (2)
  1. CLOZARIL [Suspect]
     Indication: SCHIZOPHRENIA
     Dosage: 25-300 MG QHS PO
     Route: 048
     Dates: start: 20060404, end: 20060415
  2. DEPAKOTE ER [Concomitant]

REACTIONS (9)
  - AGITATION [None]
  - EJECTION FRACTION DECREASED [None]
  - EOSINOPHIL COUNT INCREASED [None]
  - MYOCARDITIS [None]
  - MYOGLOBIN BLOOD INCREASED [None]
  - OXYGEN SATURATION DECREASED [None]
  - PYREXIA [None]
  - TROPONIN INCREASED [None]
  - VENTRICULAR HYPOKINESIA [None]
